FAERS Safety Report 22005477 (Version 1)
Quarter: 2023Q1

REPORT INFORMATION
  Report Type: Spontaneous
  Country: US (occurrence: US)
  Receive Date: 20230217
  Receipt Date: 20230217
  Transmission Date: 20230418
  Serious: No
  Sender: FDA-Public Use
  Company Number: US-CHIESI-2022CHF06473

PATIENT
  Sex: Male

DRUGS (2)
  1. BRONCHITOL [Suspect]
     Active Substance: MANNITOL
     Indication: Cystic fibrosis
     Dosage: 40 MG (10 CAPSULES), TWICE DAILY
     Dates: start: 202211
  2. BRONCHITOL [Suspect]
     Active Substance: MANNITOL
     Indication: Cystic fibrosis
     Dosage: 40 MG (10 CAPSULES), TWICE DAILY
     Dates: start: 202211

REACTIONS (2)
  - Cough [Unknown]
  - Product complaint [Unknown]

NARRATIVE: CASE EVENT DATE: 20220101
